FAERS Safety Report 18508836 (Version 2)
Quarter: 2020Q4

REPORT INFORMATION
  Report Type: Spontaneous
  Country: US (occurrence: US)
  Receive Date: 20201117
  Receipt Date: 20201123
  Transmission Date: 20210114
  Serious: Yes (Other)
  Sender: FDA-Public Use
  Company Number: US-CIPLA LTD.-2020US08578

PATIENT

DRUGS (2)
  1. SALBUTAMOL [Suspect]
     Active Substance: ALBUTEROL
     Dosage: UNK, NEW INHALER
     Dates: start: 2020
  2. SALBUTAMOL [Suspect]
     Active Substance: ALBUTEROL
     Indication: ASTHMA
     Dosage: UNK, PREVIOUS INHALERS
     Dates: start: 202010

REACTIONS (2)
  - Asthma [Unknown]
  - Device occlusion [Unknown]

NARRATIVE: CASE EVENT DATE: 202010
